FAERS Safety Report 19417612 (Version 1)
Quarter: 2021Q2

REPORT INFORMATION
  Report Type: Spontaneous
  Country: US (occurrence: US)
  Receive Date: 20210615
  Receipt Date: 20210615
  Transmission Date: 20210717
  Serious: No
  Sender: FDA-Public Use
  Company Number: None

PATIENT
  Age: 74 Year
  Sex: Male

DRUGS (5)
  1. PHENYTOIN EX [Concomitant]
  2. METOPROL SUC [Concomitant]
  3. DIGOXIN. [Concomitant]
     Active Substance: DIGOXIN
  4. XOLAIR [Suspect]
     Active Substance: OMALIZUMAB
     Indication: IDIOPATHIC URTICARIA
     Route: 058
     Dates: start: 20180213
  5. ELIQUIS [Concomitant]
     Active Substance: APIXABAN

REACTIONS (1)
  - Gallbladder operation [None]

NARRATIVE: CASE EVENT DATE: 20210614
